FAERS Safety Report 18392019 (Version 1)
Quarter: 2020Q4

REPORT INFORMATION
  Report Type: Spontaneous
  Country: US (occurrence: US)
  Receive Date: 20201016
  Receipt Date: 20201016
  Transmission Date: 20210114
  Serious: Yes (Other)
  Sender: FDA-Public Use
  Company Number: None

PATIENT
  Age: 18 Year
  Sex: Male
  Weight: 67.5 kg

DRUGS (5)
  1. PHYTOCORE 2 CAP [Concomitant]
  2. MULTI-VITAMIN (PURE GENOMICS) [Concomitant]
  3. FLUOXETINE [Suspect]
     Active Substance: FLUOXETINE HYDROCHLORIDE
     Indication: AUTOIMMUNE DISORDER
     Dosage: ?          QUANTITY:3 CAPSULE(S);?
     Route: 048
     Dates: start: 20141214
  4. .CLONIDINE HCL 1MG [Concomitant]
  5. VYVANSE [Concomitant]
     Active Substance: LISDEXAMFETAMINE DIMESYLATE

REACTIONS (6)
  - Product substitution issue [None]
  - Product dispensing error [None]
  - Product complaint [None]
  - Product impurity [None]
  - Condition aggravated [None]
  - Recalled product [None]

NARRATIVE: CASE EVENT DATE: 20200908
